FAERS Safety Report 4461979-5 (Version None)
Quarter: 2004Q3

REPORT INFORMATION
  Report Type: 
  Country: None (occurrence: None)
  Receive Date: 20040923
  Receipt Date: 20040914
  Transmission Date: 20050211
  Serious: Yes (Other)
  Sender: FDA-Public Use
  Company Number: 2004229912CA

PATIENT
  Age: 25 Year
  Sex: Female

DRUGS (2)
  1. BEXTRA [Suspect]
     Indication: JOINT INJURY
     Dosage: SEE IMAGE
     Route: 048
     Dates: start: 20040819, end: 20040819
  2. BEXTRA [Suspect]
     Indication: JOINT INJURY
     Dosage: SEE IMAGE
     Route: 048
     Dates: start: 20040820, end: 20040820

REACTIONS (3)
  - DYSPNOEA [None]
  - HYPERSENSITIVITY [None]
  - PANIC ATTACK [None]
